FAERS Safety Report 11211864 (Version 3)
Quarter: 2015Q3

REPORT INFORMATION
  Report Type: Spontaneous
  Country: DE (occurrence: DE)
  Receive Date: 20150623
  Receipt Date: 20150824
  Transmission Date: 20151125
  Serious: Yes (Hospitalization, Other)
  Sender: FDA-Public Use
  Company Number: DE-UCBSA-2015019699

PATIENT
  Age: 51 Year
  Sex: Female
  Weight: 99 kg

DRUGS (10)
  1. CELEBREX [Concomitant]
     Active Substance: CELECOXIB
     Indication: PRODUCT USED FOR UNKNOWN INDICATION
     Dosage: 200, ONCE DAILY (QD)
  2. MIRTAZAPINE. [Concomitant]
     Active Substance: MIRTAZAPINE
     Indication: PRODUCT USED FOR UNKNOWN INDICATION
     Dosage: 30, ONCE DAILY (QD)
  3. PALLADONE [Concomitant]
     Active Substance: HYDROMORPHONE HYDROCHLORIDE
     Indication: PRODUCT USED FOR UNKNOWN INDICATION
     Dosage: 8, 2X/DAY (5 AM AND 5 PM)
  4. METOPROLOL SUCCINATE. [Concomitant]
     Active Substance: METOPROLOL SUCCINATE
     Indication: PRODUCT USED FOR UNKNOWN INDICATION
     Dosage: 95, 2X/DAY (BID)
  5. RAMIPRIL. [Concomitant]
     Active Substance: RAMIPRIL
     Indication: PRODUCT USED FOR UNKNOWN INDICATION
     Dosage: 10, ONCE DAILY (QD)
  6. CIMZIA [Suspect]
     Active Substance: CERTOLIZUMAB PEGOL
     Indication: ANKYLOSING SPONDYLITIS
     Dosage: 200 MG, EV 2 WEEKS(QOW)
     Dates: start: 2013, end: 201505
  7. LYRICA [Concomitant]
     Active Substance: PREGABALIN
     Indication: PRODUCT USED FOR UNKNOWN INDICATION
     Dosage: 75, 3X/DAY (TID)
  8. PANTOZOL [Concomitant]
     Active Substance: PANTOPRAZOLE SODIUM
     Indication: PRODUCT USED FOR UNKNOWN INDICATION
     Dosage: 40, ONCE DAILY (QD)
  9. NOVAMINSULFON [Concomitant]
     Active Substance: METAMIZOLE
     Indication: PRODUCT USED FOR UNKNOWN INDICATION
     Dosage: 500, AS NEEDED (PRN) (UP TO 4 TIMES A DAY AS REQUIRED)
  10. FENOFIBRATE. [Concomitant]
     Active Substance: FENOFIBRATE
     Indication: PRODUCT USED FOR UNKNOWN INDICATION
     Dosage: 250, ONCE DAILY (QD)

REACTIONS (1)
  - Malignant melanoma [Unknown]

NARRATIVE: CASE EVENT DATE: 201412
